FAERS Safety Report 6364748-4 (Version None)
Quarter: 2009Q3

REPORT INFORMATION
  Report Type: 
  Country: None (occurrence: None)
  Receive Date: 20090919
  Receipt Date: 20090728
  Transmission Date: 20100115
  Serious: No
  Sender: FDA-Public Use
  Company Number: US-ABBOTT-09P-163-0588305-00

PATIENT
  Sex: Male
  Weight: 122.58 kg

DRUGS (3)
  1. HUMIRA [Suspect]
     Indication: RHEUMATOID ARTHRITIS
     Route: 058
     Dates: start: 20080701, end: 20090401
  2. HUMIRA [Suspect]
     Route: 058
     Dates: start: 20090703, end: 20090717
  3. METHOTREXATE [Concomitant]
     Indication: RHEUMATOID ARTHRITIS
     Dosage: 6 TABS ONCE A WEEK
     Route: 048

REACTIONS (1)
  - SWELLING [None]
